FAERS Safety Report 15575056 (Version 2)
Quarter: 2019Q1

REPORT INFORMATION
  Report Type: Spontaneous
  Country: US (occurrence: US)
  Receive Date: 20181101
  Receipt Date: 20190312
  Transmission Date: 20190417
  Serious: No
  Sender: FDA-Public Use
  Company Number: US-PFIZER INC-2018301779

PATIENT
  Age: 52 Year
  Sex: Male

DRUGS (3)
  1. LYRICA [Suspect]
     Active Substance: PREGABALIN
     Indication: BONE DISORDER
     Dosage: 300 MG, DAILY
  2. LYRICA [Suspect]
     Active Substance: PREGABALIN
     Indication: ARTHROPATHY
  3. LYRICA [Suspect]
     Active Substance: PREGABALIN
     Indication: PAIN IN EXTREMITY

REACTIONS (1)
  - Pain [Unknown]
